FAERS Safety Report 4598163-0 (Version None)
Quarter: 2005Q1

REPORT INFORMATION
  Report Type: 
  Country: None (occurrence: None)
  Receive Date: 20050301
  Receipt Date: 20050301
  Transmission Date: 20050727
  Serious: Yes (Hospitalization)
  Sender: FDA-Public Use
  Company Number: None

PATIENT
  Age: 46 Year
  Sex: Male
  Weight: 101.8 kg

DRUGS (5)
  1. LOXAPINE [Suspect]
     Indication: PSYCHOTIC DISORDER
     Dosage: SEE IMAGE
     Route: 048
     Dates: start: 20041126
  2. TRAVOPROST [Concomitant]
  3. .. [Concomitant]
  4. CLOTRIMAZOLE [Concomitant]
  5. BENZTROPINE MESYLATE [Concomitant]

REACTIONS (9)
  - AGITATION [None]
  - HYPERTHYROIDISM [None]
  - HYPOXIA [None]
  - PRODUCTIVE COUGH [None]
  - PYREXIA [None]
  - SUICIDAL IDEATION [None]
  - SUPRAVENTRICULAR TACHYCARDIA [None]
  - TEMPERATURE REGULATION DISORDER [None]
  - TREATMENT NONCOMPLIANCE [None]
